FAERS Safety Report 5022601-2 (Version None)
Quarter: 2006Q2

REPORT INFORMATION
  Report Type: 
  Country: None (occurrence: None)
  Receive Date: 20060609
  Receipt Date: 20060526
  Transmission Date: 20061013
  Serious: Yes (Hospitalization)
  Sender: FDA-Public Use
  Company Number: AT-ABBOTT-06P-009-0334849-00

PATIENT
  Age: 49 Year
  Sex: Female

DRUGS (7)
  1. HUMIRA [Suspect]
     Indication: RHEUMATOID ARTHRITIS
     Route: 058
     Dates: start: 20050422, end: 20051018
  2. LEKOVIT CA [Concomitant]
     Indication: BONE DISORDER
  3. ESOMEPRAZOLE [Concomitant]
     Indication: VITILIGO
  4. BISOPROLOL FUMARATE [Concomitant]
     Indication: HYPERTENSION
  5. SETRALINE HCL [Concomitant]
     Indication: FIBROCYSTIC BREAST DISEASE
  6. ATORVASTATIN CALCIUM [Concomitant]
     Indication: HYPERLIPIDAEMIA
  7. LEVOTHYROXINE SODIUM [Concomitant]
     Indication: AUTOIMMUNE THYROIDITIS

REACTIONS (2)
  - INFECTION [None]
  - RHEUMATOID NODULE [None]
